FAERS Safety Report 24613051 (Version 2)
Quarter: 2025Q1

REPORT INFORMATION
  Report Type: Report from Study
  Country: US (occurrence: US)
  Receive Date: 20241113
  Receipt Date: 20250218
  Transmission Date: 20250409
  Serious: Yes (Other)
  Sender: TAKEDA
  Company Number: US-TAKEDA-2022TUS033120

PATIENT
  Sex: Female
  Weight: 51 kg

DRUGS (19)
  1. PONATINIB [Suspect]
     Active Substance: PONATINIB
     Indication: Acute lymphocytic leukaemia
     Dosage: 15 MILLIGRAM, QD
     Dates: start: 202203
  2. PONATINIB [Suspect]
     Active Substance: PONATINIB
     Indication: Philadelphia positive acute lymphocytic leukaemia
     Dosage: 15 MILLIGRAM, QD
  3. PONATINIB [Suspect]
     Active Substance: PONATINIB
  4. PONATINIB [Suspect]
     Active Substance: PONATINIB
     Dosage: 15 MILLIGRAM, QD
     Dates: end: 20250210
  5. SYNTHROID [Concomitant]
     Active Substance: LEVOTHYROXINE SODIUM
     Indication: Thyroid operation
  6. VALACYCLOVIR HYDROCHLORIDE [Concomitant]
     Active Substance: VALACYCLOVIR HYDROCHLORIDE
     Indication: Herpes zoster
  7. BIOTIN [Concomitant]
     Active Substance: BIOTIN
  8. COLACE [Concomitant]
     Active Substance: DOCUSATE SODIUM
     Dosage: 100 MILLIGRAM, BID
  9. MELATONIN [Concomitant]
     Active Substance: MELATONIN
  10. ATOVAQUONE [Concomitant]
     Active Substance: ATOVAQUONE
  11. VITAMIN D3 [Concomitant]
     Active Substance: CHOLECALCIFEROL
     Indication: Prophylaxis
  12. ESCITALOPRAM [Concomitant]
     Active Substance: ESCITALOPRAM OXALATE
     Indication: Anxiety
     Dosage: 10 MILLIGRAM, QD
  13. VITAMINS [Concomitant]
     Active Substance: VITAMINS
     Indication: Vitamin supplementation
  14. CHOLECALCIFEROL [Concomitant]
     Active Substance: CHOLECALCIFEROL
     Dosage: 25 MICROGRAM, QD
  15. FAMOTIDINE [Concomitant]
     Active Substance: FAMOTIDINE
  16. ZOFRAN [Concomitant]
     Active Substance: ONDANSETRON HYDROCHLORIDE
  17. VALTREX [Concomitant]
     Active Substance: VALACYCLOVIR HYDROCHLORIDE
     Dosage: 500 MILLIGRAM, BID
  18. VALSARTAN [Concomitant]
     Active Substance: VALSARTAN
  19. SIMVASTATIN [Concomitant]
     Active Substance: SIMVASTATIN
     Indication: Low density lipoprotein

REACTIONS (14)
  - Chronic kidney disease [Unknown]
  - Neuropathy peripheral [Unknown]
  - Rash vesicular [Recovered/Resolved]
  - Miliaria [Recovered/Resolved]
  - Insomnia [Unknown]
  - Paraesthesia [Unknown]
  - Pleural effusion [Unknown]
  - Rash [Unknown]
  - Visual impairment [Unknown]
  - Constipation [Unknown]
  - Dry mouth [Unknown]
  - Fatigue [Unknown]
  - Foot deformity [Unknown]
  - Product dose omission issue [Unknown]
